FAERS Safety Report 7366691-0 (Version None)
Quarter: 2011Q1

REPORT INFORMATION
  Report Type: 
  Country: None (occurrence: None)
  Receive Date: 20110317
  Receipt Date: 20110317
  Transmission Date: 20110831
  Serious: Yes (Life-Threatening, Disabling)
  Sender: FDA-Public Use
  Company Number: None

PATIENT
  Sex: Male
  Weight: 85.6 kg

DRUGS (1)
  1. DEXFERRUM [Suspect]
     Indication: ANAEMIA
     Dosage: 25 MG/1ML. IN 20ML NS ONE TIME IV
     Route: 042
     Dates: start: 20110311, end: 20110311

REACTIONS (3)
  - DYSPNOEA [None]
  - ERYTHEMA [None]
  - PAIN [None]
